FAERS Safety Report 15045013 (Version 1)
Quarter: 2018Q2

REPORT INFORMATION
  Report Type: Spontaneous
  Country: FR (occurrence: FR)
  Receive Date: 20180621
  Receipt Date: 20180621
  Transmission Date: 20180711
  Serious: Yes (Hospitalization)
  Sender: FDA-Public Use
  Company Number: FR-TEVA-2018-FR-910914

PATIENT
  Age: 56 Year
  Sex: Male
  Weight: 62 kg

DRUGS (4)
  1. PAROXETINE. [Concomitant]
     Active Substance: PAROXETINE
     Indication: DEPRESSION
     Dosage: 1 DOSAGE FORMS DAILY;
     Route: 048
     Dates: start: 20170710, end: 20171123
  2. ZOPICLONE [Concomitant]
     Active Substance: ZOPICLONE
     Indication: INSOMNIA
     Dosage: 7.5 MILLIGRAM DAILY;
     Route: 048
     Dates: start: 20170701
  3. ARIPIPRAZOLE. [Suspect]
     Active Substance: ARIPIPRAZOLE
     Indication: PSYCHOTIC DISORDER
     Dosage: 10 MILLIGRAM DAILY;
     Route: 048
     Dates: start: 20170713, end: 20171227
  4. VALIUM ROCHE 2 MG, COMPRIM? S?CABLE [Concomitant]
     Indication: PSYCHOTIC DISORDER
     Dosage: 4 MILLIGRAM DAILY;
     Route: 048
     Dates: start: 20170707

REACTIONS (2)
  - Inappropriate affect [Recovering/Resolving]
  - Exhibitionism [Recovering/Resolving]

NARRATIVE: CASE EVENT DATE: 20171106
